FAERS Safety Report 7338162 (Version 6)
Quarter: 2012Q4

REPORT INFORMATION
  Report Type: 
  Country: US (occurrence: US)
  Receive Date: 20100331
  Receipt Date: 20120910
  Transmission Date: 20130627
  Serious: No
  Sender: FDA-Public Use
  Company Number: 2009BI004067

PATIENT
  Age: 55 None
  Sex: Female

DRUGS (2)
  1. TYSABRI [Suspect]
     Indication: MULTIPLE SCLEROSIS
     Route: 042
     Dates: start: 20081016, end: 20101115
  2. TYSABRI [Suspect]
     Indication: MULTIPLE SCLEROSIS
     Route: 042
     Dates: start: 20110307

REACTIONS (23)
  - Dysgeusia [Recovered/Resolved]
  - Eye movement disorder [Not Recovered/Not Resolved]
  - Metamorphopsia [Not Recovered/Not Resolved]
  - Quality of life decreased [Not Recovered/Not Resolved]
  - White blood cell count increased [Recovered/Resolved]
  - Depression [Recovered/Resolved]
  - Muscle atrophy [Not Recovered/Not Resolved]
  - Migraine [Not Recovered/Not Resolved]
  - Amnesia [Not Recovered/Not Resolved]
  - Musculoskeletal stiffness [Recovered/Resolved]
  - Gait disturbance [Not Recovered/Not Resolved]
  - Nystagmus [Not Recovered/Not Resolved]
  - Fall [Recovered/Resolved]
  - Visual impairment [Not Recovered/Not Resolved]
  - Rosacea [Not Recovered/Not Resolved]
  - Blindness [Not Recovered/Not Resolved]
  - Alopecia [Not Recovered/Not Resolved]
  - Fatigue [Recovered/Resolved]
  - Nausea [Not Recovered/Not Resolved]
  - Dizziness [Recovered/Resolved]
  - Arthralgia [Recovered/Resolved]
  - Constipation [Not Recovered/Not Resolved]
  - Asthenia [Recovered/Resolved]
